FAERS Safety Report 6067922-X (Version None)
Quarter: 2009Q1

REPORT INFORMATION
  Report Type: 
  Country: None (occurrence: None)
  Receive Date: 20090121
  Receipt Date: 20080215
  Transmission Date: 20090719
  Serious: Yes (Hospitalization, Other)
  Sender: FDA-Public Use
  Company Number: HQWYE075201MAY06

PATIENT
  Age: 61 Year

DRUGS (6)
  1. PREMPRO [Suspect]
  2. ACTIVELLA [Suspect]
  3. CYCRIN [Suspect]
  4. PREMARIN [Suspect]
  5. PREMPHASE 14/14 [Suspect]
  6. PROVERA [Suspect]

REACTIONS (1)
  - BREAST CANCER [None]
